FAERS Safety Report 7990832-5 (Version None)
Quarter: 2011Q4

REPORT INFORMATION
  Report Type: 
  Country: None (occurrence: None)
  Receive Date: 20111219
  Receipt Date: 20111216
  Transmission Date: 20120403
  Serious: Yes (Hospitalization)
  Sender: FDA-Public Use
  Company Number: US-ROCHE-1016014

PATIENT
  Sex: Female
  Weight: 99.88 kg

DRUGS (5)
  1. ADVAIR DISKUS 100/50 [Concomitant]
  2. PROVENTIL [Concomitant]
     Dosage: DOSE FORM : PUFF
  3. XOLAIR [Suspect]
  4. SINGULAIR [Concomitant]
  5. XOLAIR [Suspect]
     Indication: ASTHMA
     Route: 058
     Dates: start: 20040511

REACTIONS (3)
  - CHEST DISCOMFORT [None]
  - MYALGIA [None]
  - HEADACHE [None]
